FAERS Safety Report 25810338 (Version 1)
Quarter: 2025Q3

REPORT INFORMATION
  Report Type: Spontaneous
  Country: US (occurrence: US)
  Receive Date: 20250917
  Receipt Date: 20250917
  Transmission Date: 20251021
  Serious: No
  Sender: KVK-TECH
  Company Number: US-KVK-TECH, INC-20250200019

PATIENT
  Sex: Female
  Weight: 86.168 kg

DRUGS (3)
  1. LOMAIRA [Suspect]
     Active Substance: PHENTERMINE HYDROCHLORIDE
     Indication: Weight decreased
     Route: 065
     Dates: start: 2024
  2. LOMAIRA [Suspect]
     Active Substance: PHENTERMINE HYDROCHLORIDE
     Indication: Obesity
  3. TRAZODONE [Concomitant]
     Active Substance: TRAZODONE HYDROCHLORIDE
     Indication: Product used for unknown indication
     Route: 065

REACTIONS (1)
  - Drug ineffective [Not Recovered/Not Resolved]
